FAERS Safety Report 24548565 (Version 1)
Quarter: 2024Q4

REPORT INFORMATION
  Report Type: Other
  Country: US (occurrence: US)
  Receive Date: 20241025
  Receipt Date: 20241025
  Transmission Date: 20250115
  Serious: Yes (Hospitalization, Other)
  Sender: Velzen Pharma
  Company Number: US-Velzen pharma pvt ltd-2163814

PATIENT
  Age: 58 Year
  Sex: Male

DRUGS (4)
  1. NIFEDIPINE [Suspect]
     Active Substance: NIFEDIPINE
     Indication: Hypertensive crisis
  2. CARVEDILOL [Suspect]
     Active Substance: CARVEDILOL
  3. PIPERACILLIN AND TAZOBACTAM [Concomitant]
     Active Substance: PIPERACILLIN SODIUM\TAZOBACTAM SODIUM
  4. VANCOMYCIN HYDROCHLORIDE [Concomitant]
     Active Substance: VANCOMYCIN HYDROCHLORIDE

REACTIONS (5)
  - Shock [Recovering/Resolving]
  - Product use in unapproved indication [Unknown]
  - Hypoglycaemia [Recovering/Resolving]
  - Hypotension [Recovering/Resolving]
  - Hypothermia [Recovering/Resolving]
